FAERS Safety Report 8244116-0 (Version None)
Quarter: 2012Q1

REPORT INFORMATION
  Report Type: 
  Country: None (occurrence: None)
  Receive Date: 20120329
  Receipt Date: 20120326
  Transmission Date: 20120608
  Serious: Yes (Hospitalization, Other)
  Sender: FDA-Public Use
  Company Number: US-PFIZER INC-2012078111

PATIENT
  Age: 72 Year
  Sex: Female

DRUGS (2)
  1. FLUOXETINE [Suspect]
     Indication: DEPRESSION
     Dosage: 20 MG
     Dates: start: 19931201
  2. THIOTHIXENE HCL [Suspect]
     Indication: HALLUCINATION, VISUAL
     Dosage: 2 MG
     Dates: start: 19931201

REACTIONS (6)
  - PARKINSONISM [None]
  - COGNITIVE DISORDER [None]
  - DEMENTIA ALZHEIMER'S TYPE [None]
  - SPEECH DISORDER [None]
  - HALLUCINATION, VISUAL [None]
  - CONFUSIONAL STATE [None]
